FAERS Safety Report 13574662 (Version 1)
Quarter: 2017Q2

REPORT INFORMATION
  Report Type: Spontaneous
  Country: US (occurrence: US)
  Receive Date: 20170523
  Receipt Date: 20170523
  Transmission Date: 20170830
  Serious: No
  Sender: FDA-Public Use
  Company Number: US-SA-2016SA205431

PATIENT
  Age: 71 Year
  Sex: Female

DRUGS (9)
  1. FISH OIL [Concomitant]
     Active Substance: FISH OIL
  2. IBRANCE [Concomitant]
     Active Substance: PALBOCICLIB
  3. VITAMIN D [Concomitant]
     Active Substance: CHOLECALCIFEROL
  4. LETROZOLE. [Concomitant]
     Active Substance: LETROZOLE
  5. CALCIUM [Concomitant]
     Active Substance: CALCIUM
  6. PRILOSEC [Concomitant]
     Active Substance: OMEPRAZOLE MAGNESIUM
  7. ASA [Concomitant]
     Active Substance: ASPIRIN
  8. RIFAMPIN. [Suspect]
     Active Substance: RIFAMPIN
     Route: 065
  9. VITAMIN C [Concomitant]
     Active Substance: ASCORBIC ACID

REACTIONS (1)
  - Hypersensitivity [Unknown]
